FAERS Safety Report 6992313-4 (Version None)
Quarter: 2010Q3

REPORT INFORMATION
  Report Type: 
  Country: None (occurrence: None)
  Receive Date: 20100917
  Receipt Date: 20100913
  Transmission Date: 20110219
  Serious: Yes (Hospitalization)
  Sender: FDA-Public Use
  Company Number: US-BAYER-201020010BCC

PATIENT
  Age: 73 Year
  Sex: Male
  Weight: 62 kg

DRUGS (1)
  1. ASPIRIN [Suspect]
     Indication: ARTHRALGIA
     Route: 048
     Dates: start: 19400101, end: 19900101

REACTIONS (2)
  - DRUG HYPERSENSITIVITY [None]
  - GASTRIC HAEMORRHAGE [None]
